FAERS Safety Report 9368846 (Version 2)
Quarter: 2013Q4

REPORT INFORMATION
  Report Type: Spontaneous
  Country: US (occurrence: US)
  Receive Date: 20130626
  Receipt Date: 20131119
  Transmission Date: 20140711
  Serious: Yes (Death)
  Sender: FDA-Public Use
  Company Number: US-009507513-1306USA010183

PATIENT
  Age: 65 Year
  Sex: Female

DRUGS (1)
  1. ISENTRESS [Suspect]
     Route: 048

REACTIONS (1)
  - Death [Fatal]
